FAERS Safety Report 14048270 (Version 2)
Quarter: 2017Q4

REPORT INFORMATION
  Report Type: Report from Study
  Country: CO (occurrence: CO)
  Receive Date: 20171005
  Receipt Date: 20171024
  Transmission Date: 20180321
  Serious: Yes (Hospitalization, Other)
  Sender: FDA-Public Use
  Company Number: PHHY2017CO143787

PATIENT
  Sex: Female
  Weight: 62 kg

DRUGS (1)
  1. TASIGNA [Suspect]
     Active Substance: NILOTINIB
     Indication: CHRONIC MYELOID LEUKAEMIA
     Dosage: 2 DF, Q12H
     Route: 048
     Dates: start: 20170215

REACTIONS (8)
  - Fatigue [Unknown]
  - Dyspepsia [Unknown]
  - Cholecystitis [Unknown]
  - Gastritis [Unknown]
  - Vomiting [Unknown]
  - Pain [Unknown]
  - Liver disorder [Unknown]
  - Decreased appetite [Unknown]
